FAERS Safety Report 14378146 (Version 1)
Quarter: 2018Q1

REPORT INFORMATION
  Report Type: Spontaneous
  Country: US (occurrence: US)
  Receive Date: 20180111
  Receipt Date: 20180111
  Transmission Date: 20180509
  Serious: Yes (Other)
  Sender: FDA-Public Use
  Company Number: US-ALLERGAN-1800614US

PATIENT
  Age: 70 Year
  Sex: Male

DRUGS (1)
  1. TIMOLOL UNK [Suspect]
     Active Substance: TIMOLOL
     Indication: INTRAOCULAR PRESSURE INCREASED
     Dosage: UNK, QD
     Route: 047

REACTIONS (4)
  - Hypotony of eye [Recovered/Resolved]
  - Cystoid macular oedema [Recovering/Resolving]
  - Visual acuity reduced [Recovering/Resolving]
  - Chorioretinal folds [Recovering/Resolving]
